FAERS Safety Report 8882659 (Version 1)
Quarter: 2012Q4

REPORT INFORMATION
  Report Type: 
  Country: US (occurrence: US)
  Receive Date: 20121105
  Receipt Date: 20121105
  Transmission Date: 20130627
  Serious: Yes (Death)
  Sender: FDA-Public Use
  Company Number: US-SHIRE-ALL1-2012-05290

PATIENT
  Sex: Male
  Weight: 66.7 kg

DRUGS (1)
  1. CARBATROL [Suspect]
     Indication: EPILEPSY
     Dosage: 600 mg (2 300 mg capsules), 2x/day:bid
     Route: 048
     Dates: start: 201004

REACTIONS (1)
  - Death [Fatal]
